FAERS Safety Report 9145417 (Version 1)
Quarter: 2013Q1

REPORT INFORMATION
  Report Type: Spontaneous
  Country: US (occurrence: US)
  Receive Date: 20130307
  Receipt Date: 20130307
  Transmission Date: 20140127
  Serious: Yes (Other)
  Sender: FDA-Public Use
  Company Number: US-JNJFOC-20130214921

PATIENT
  Age: 63 Year
  Sex: Male
  Weight: 127.01 kg

DRUGS (4)
  1. XARELTO [Suspect]
     Indication: CEREBROVASCULAR ACCIDENT PROPHYLAXIS
     Route: 048
     Dates: start: 20130131
  2. XARELTO [Suspect]
     Indication: ATRIAL FIBRILLATION
     Route: 048
     Dates: start: 20130131
  3. HCTZ/VALSARTAN [Concomitant]
     Dosage: 80MG-12.5MG
     Route: 065
  4. MULTAQ [Concomitant]
     Route: 065
     Dates: start: 20130131

REACTIONS (4)
  - Blood urine present [Recovering/Resolving]
  - Thrombosis [Recovering/Resolving]
  - Stress [Not Recovered/Not Resolved]
  - Inappropriate schedule of drug administration [Not Recovered/Not Resolved]
